FAERS Safety Report 4832141-9 (Version None)
Quarter: 2005Q4

REPORT INFORMATION
  Report Type: 
  Country: None (occurrence: None)
  Receive Date: 20051114
  Receipt Date: 20051101
  Transmission Date: 20060501
  Serious: Yes (Death, Hospitalization)
  Sender: FDA-Public Use
  Company Number: 200513727GDS

PATIENT
  Age: 73 Year
  Sex: Male
  Weight: 50 kg

DRUGS (4)
  1. ASPIRIN [Suspect]
     Indication: MYOCARDIAL ISCHAEMIA
  2. GLIBENCLAMIDE [Concomitant]
  3. LANSOPRAZOLE [Concomitant]
  4. INSULIN [Concomitant]

REACTIONS (31)
  - ANAEMIA [None]
  - ANAESTHETIC COMPLICATION [None]
  - ARTERIAL BRUIT [None]
  - ARTERIOSCLEROSIS [None]
  - ARTERITIS OBLITERANS [None]
  - BLOOD CREATININE INCREASED [None]
  - BLOOD PRESSURE DIASTOLIC DECREASED [None]
  - BLOOD UREA INCREASED [None]
  - CARDIAC FAILURE CONGESTIVE [None]
  - CARDIAC MURMUR [None]
  - COAGULOPATHY [None]
  - CONJUNCTIVAL DISORDER [None]
  - CORONARY ARTERY DISEASE [None]
  - DEPRESSED LEVEL OF CONSCIOUSNESS [None]
  - DIABETES MELLITUS INADEQUATE CONTROL [None]
  - DRUG INEFFECTIVE [None]
  - EOSINOPHIL COUNT INCREASED [None]
  - FAT EMBOLISM [None]
  - GANGRENE [None]
  - HYPOREFLEXIA [None]
  - LABORATORY TEST ABNORMAL [None]
  - MYOCARDIAL INFARCTION [None]
  - NEOPLASM MALIGNANT [None]
  - PALLANAESTHESIA [None]
  - PLATELET COUNT DECREASED [None]
  - PNEUMONIA ASPIRATION [None]
  - PROTEIN URINE PRESENT [None]
  - RED BLOOD CELLS URINE POSITIVE [None]
  - RENAL IMPAIRMENT [None]
  - UPPER GASTROINTESTINAL HAEMORRHAGE [None]
  - URINARY CASTS [None]
